FAERS Safety Report 7345000-7 (Version None)
Quarter: 2011Q1

REPORT INFORMATION
  Report Type: 
  Country: None (occurrence: None)
  Receive Date: 20110302
  Receipt Date: 20110207
  Transmission Date: 20110831
  Serious: No
  Sender: FDA-Public Use
  Company Number: 2011-00059

PATIENT
  Sex: Female

DRUGS (1)
  1. ZICAM COLD REMEDY PLUS LIQUI-LOZ [Suspect]

REACTIONS (2)
  - GLOSSODYNIA [None]
  - AGEUSIA [None]
